FAERS Safety Report 17247314 (Version 1)
Quarter: 2020Q1

REPORT INFORMATION
  Report Type: Report from Study
  Country: US (occurrence: US)
  Receive Date: 20200108
  Receipt Date: 20200108
  Transmission Date: 20200409
  Serious: Yes (Hospitalization, Disabling)
  Sender: FDA-Public Use
  Company Number: US-GILEAD-2019-0443620

PATIENT
  Age: 78 Year
  Sex: Male
  Weight: 98.87 kg

DRUGS (2)
  1. AMBRISENTAN [Suspect]
     Active Substance: AMBRISENTAN
     Indication: PRODUCT USED FOR UNKNOWN INDICATION
     Dosage: 10 MG, QD
     Route: 048
     Dates: start: 20191024
  2. SILDENAFIL. [Concomitant]
     Active Substance: SILDENAFIL

REACTIONS (6)
  - Nasal congestion [Recovered/Resolved]
  - Headache [Recovered/Resolved]
  - Sinus congestion [Unknown]
  - Peripheral swelling [Recovered/Resolved]
  - Oedema peripheral [Unknown]
  - Oedema [Unknown]

NARRATIVE: CASE EVENT DATE: 201912
